FAERS Safety Report 9325852 (Version 1)
Quarter: 2013Q2

REPORT INFORMATION
  Report Type: Spontaneous
  Country: US (occurrence: US)
  Receive Date: 20130604
  Receipt Date: 20130604
  Transmission Date: 20140414
  Serious: No
  Sender: FDA-Public Use
  Company Number: US-BAYER-2013-067456

PATIENT
  Sex: Female

DRUGS (3)
  1. ALEVE TABLET [Suspect]
     Dosage: 2 DF, PRN
     Route: 048
     Dates: start: 2012
  2. HYDROCHLOROTHIAZIDE [Concomitant]
  3. LABETALOL [Concomitant]

REACTIONS (1)
  - Incorrect dose administered [None]
